FAERS Safety Report 18674850 (Version 1)
Quarter: 2020Q4

REPORT INFORMATION
  Report Type: Spontaneous
  Country: US (occurrence: US)
  Receive Date: 20201229
  Receipt Date: 20201229
  Transmission Date: 20210114
  Serious: No
  Sender: FDA-Public Use
  Company Number: US-BAUSCH-BL-2020-035156

PATIENT
  Sex: Male

DRUGS (2)
  1. LOTEMAX SM [Suspect]
     Active Substance: LOTEPREDNOL ETABONATE
     Route: 047
  2. LOTEMAX SM [Suspect]
     Active Substance: LOTEPREDNOL ETABONATE
     Indication: PRODUCT USED FOR UNKNOWN INDICATION
     Dosage: THE BOTTLE WORKED FINE
     Route: 047

REACTIONS (4)
  - Wrong technique in product usage process [Unknown]
  - Product delivery mechanism issue [Unknown]
  - Product quality issue [Unknown]
  - Eye irritation [Unknown]
